FAERS Safety Report 7765126-3 (Version None)
Quarter: 2011Q3

REPORT INFORMATION
  Report Type: 
  Country: None (occurrence: None)
  Receive Date: 20110921
  Receipt Date: 20110915
  Transmission Date: 20111222
  Serious: Yes (Hospitalization)
  Sender: FDA-Public Use
  Company Number: CA-ROCHE-803438

PATIENT
  Sex: Female

DRUGS (11)
  1. METHOTREXATE [Concomitant]
  2. ARAVA [Concomitant]
  3. TOCILIZUMAB [Suspect]
     Route: 042
     Dates: start: 20110621
  4. NORVASC [Concomitant]
  5. TOCILIZUMAB [Suspect]
     Route: 042
     Dates: start: 20110511
  6. TOCILIZUMAB [Suspect]
     Route: 042
     Dates: start: 20110407
  7. TOCILIZUMAB [Suspect]
     Indication: RHEUMATOID ARTHRITIS
     Route: 042
     Dates: start: 20101221
  8. TOCILIZUMAB [Suspect]
     Route: 042
     Dates: start: 20110310
  9. FOLIC ACID [Concomitant]
  10. TOCILIZUMAB [Suspect]
     Route: 042
     Dates: start: 20110712
  11. TOCILIZUMAB [Suspect]
     Route: 042
     Dates: start: 20110812

REACTIONS (1)
  - ANKLE ARTHROPLASTY [None]
